FAERS Safety Report 13895507 (Version 1)
Quarter: 2017Q3

REPORT INFORMATION
  Report Type: Spontaneous
  Country: US (occurrence: US)
  Receive Date: 20170819
  Receipt Date: 20170819
  Transmission Date: 20171127
  Serious: No
  Sender: FDA-Public Use
  Company Number: None

PATIENT
  Age: 67 Year
  Weight: 45 kg

DRUGS (4)
  1. VITAMIN D3 [Concomitant]
     Active Substance: CHOLECALCIFEROL
  2. CEPHALEXIN 500MG CAPS [Suspect]
     Active Substance: CEPHALEXIN
     Indication: ARTHROPOD BITE
     Dosage: ?          QUANTITY:28 CAPSULE(S);?
     Route: 048
     Dates: start: 20170817, end: 20170819
  3. CEPHALEXIN 500MG CAPS [Suspect]
     Active Substance: CEPHALEXIN
     Indication: INFECTION
     Dosage: ?          QUANTITY:28 CAPSULE(S);?
     Route: 048
     Dates: start: 20170817, end: 20170819
  4. VITAMIN B12 [Concomitant]
     Active Substance: CYANOCOBALAMIN

REACTIONS (3)
  - Gastrointestinal pain [None]
  - Abdominal pain upper [None]
  - Diarrhoea [None]

NARRATIVE: CASE EVENT DATE: 20170819
